FAERS Safety Report 5590750-6 (Version None)
Quarter: 2008Q1

REPORT INFORMATION
  Report Type: 
  Country: None (occurrence: None)
  Receive Date: 20080110
  Receipt Date: 20071226
  Transmission Date: 20080703
  Serious: Yes (Hospitalization, Other)
  Sender: FDA-Public Use
  Company Number: 2008BI000009

PATIENT
  Sex: Male

DRUGS (2)
  1. TYSABRI [Suspect]
     Dosage: IV
     Route: 042
     Dates: start: 20040701, end: 20070701
  2. EFFEXOR [Concomitant]

REACTIONS (6)
  - ABASIA [None]
  - COGNITIVE DISORDER [None]
  - FATIGUE [None]
  - ILL-DEFINED DISORDER [None]
  - INSOMNIA [None]
  - MULTIPLE SCLEROSIS RELAPSE [None]
